FAERS Safety Report 8635265 (Version 2)
Quarter: 2012Q4

REPORT INFORMATION
  Report Type: 
  Country: US (occurrence: US)
  Receive Date: 20120626
  Receipt Date: 20120910
  Transmission Date: 20130627
  Serious: Yes (Other)
  Sender: FDA-Public Use
  Company Number: US-BAYER-2012-050955

PATIENT
  Age: 54 Year
  Sex: Female

DRUGS (2)
  1. NEXAVAR [Suspect]
     Indication: HEPATIC NEOPLASM MALIGNANT
     Dosage: 1 am and 2 pm
     Dates: start: 201204, end: 20120813
  2. NEXAVAR [Suspect]
     Indication: HEPATIC NEOPLASM MALIGNANT
     Dosage: 400 mg, BID
     Dates: start: 20120521, end: 20120604

REACTIONS (10)
  - Abasia [None]
  - Hyperkeratosis [Not Recovered/Not Resolved]
  - Alopecia [Not Recovered/Not Resolved]
  - Constipation [Not Recovered/Not Resolved]
  - Fatigue [Not Recovered/Not Resolved]
  - Blister [Recovering/Resolving]
  - Skin fissures [None]
  - Pain of skin [None]
  - Blood pressure decreased [Not Recovered/Not Resolved]
  - Blister [Recovering/Resolving]
